FAERS Safety Report 15527073 (Version 1)
Quarter: 2018Q4

REPORT INFORMATION
  Report Type: Spontaneous
  Country: MX (occurrence: MX)
  Receive Date: 20181020
  Receipt Date: 20181020
  Transmission Date: 20190205
  Serious: Yes (Other)
  Sender: FDA-Public Use
  Company Number: MX-BAUSCH-BL-2018-028448

PATIENT
  Age: 24 Year
  Sex: Female

DRUGS (1)
  1. PREDNISOLONE ACETATE. [Suspect]
     Active Substance: PREDNISOLONE ACETATE
     Indication: IRIDOCYCLITIS
     Route: 061

REACTIONS (3)
  - Keratopathy [Recovering/Resolving]
  - Corneal disorder [Unknown]
  - Condition aggravated [Recovering/Resolving]
